FAERS Safety Report 24246900 (Version 1)
Quarter: 2024Q3

REPORT INFORMATION
  Report Type: Report from Study
  Country: KR (occurrence: KR)
  Receive Date: 20240826
  Receipt Date: 20240826
  Transmission Date: 20241017
  Serious: Yes (Other)
  Sender: JOHNSON AND JOHNSON
  Company Number: KR-JNJFOC-20240845151

PATIENT

DRUGS (3)
  1. ERDAFITINIB [Suspect]
     Active Substance: ERDAFITINIB
     Indication: Cholangiocarcinoma
     Route: 048
  2. ERDAFITINIB [Suspect]
     Active Substance: ERDAFITINIB
     Indication: Oesophageal carcinoma
     Dosage: 7 DAYS ON/7 DAYS OFF
     Route: 065
  3. ERDAFITINIB [Suspect]
     Active Substance: ERDAFITINIB
     Indication: Transitional cell carcinoma

REACTIONS (20)
  - Pneumonia [Recovered/Resolved]
  - Detachment of retinal pigment epithelium [Unknown]
  - Alanine aminotransferase increased [Recovered/Resolved]
  - Rash erythematous [Recovered/Resolved]
  - Hyperphosphataemia [Unknown]
  - Anaemia [Unknown]
  - Dry mouth [Unknown]
  - Stomatitis [Unknown]
  - Aspartate aminotransferase increased [Unknown]
  - Diarrhoea [Unknown]
  - Decreased appetite [Unknown]
  - Dry skin [Unknown]
  - Constipation [Unknown]
  - Arthralgia [Unknown]
  - Palmar-plantar erythrodysaesthesia syndrome [Unknown]
  - Paronychia [Unknown]
  - Dysgeusia [Unknown]
  - Dry eye [Unknown]
  - Nail discolouration [Unknown]
  - Onychomadesis [Unknown]
